FAERS Safety Report 11553191 (Version 1)
Quarter: 2015Q3

REPORT INFORMATION
  Report Type: Spontaneous
  Country: CA (occurrence: CA)
  Receive Date: 20150925
  Receipt Date: 20150925
  Transmission Date: 20151125
  Serious: Yes (Disabling, Other)
  Sender: FDA-Public Use
  Company Number: CA-JNJFOC-20150819215

PATIENT
  Age: 39 Year
  Sex: Male

DRUGS (1)
  1. INVOKANA [Suspect]
     Active Substance: CANAGLIFLOZIN
     Indication: DIABETES MELLITUS
     Route: 065
     Dates: start: 20150525, end: 20150708

REACTIONS (4)
  - Rectal haemorrhage [Recovered/Resolved]
  - Skin exfoliation [Unknown]
  - Burns second degree [Unknown]
  - Burning sensation [Unknown]

NARRATIVE: CASE EVENT DATE: 20150708
